FAERS Safety Report 7166604-0 (Version None)
Quarter: 2010Q4

REPORT INFORMATION
  Report Type: 
  Country: None (occurrence: None)
  Receive Date: 20101216
  Receipt Date: 20101214
  Transmission Date: 20110411
  Serious: Yes (Disabling)
  Sender: FDA-Public Use
  Company Number: FI-SANOFI-AVENTIS-2010SA075290

PATIENT
  Age: 68 Year
  Sex: Male

DRUGS (4)
  1. ARAVA [Suspect]
     Route: 048
     Dates: start: 20090603, end: 20100729
  2. HUMIRA [Concomitant]
     Route: 058
     Dates: start: 20091005
  3. PREDNISOLONE [Concomitant]
     Route: 048
     Dates: start: 20070101
  4. ALENDRONATE [Concomitant]
     Indication: OSTEOPOROSIS
     Route: 048
     Dates: start: 20070101

REACTIONS (4)
  - DIFFUSE AXONAL INJURY [None]
  - MUSCULAR WEAKNESS [None]
  - PARAESTHESIA [None]
  - WALKING DISABILITY [None]
